FAERS Safety Report 6124248-3 (Version None)
Quarter: 2009Q1

REPORT INFORMATION
  Report Type: 
  Country: None (occurrence: None)
  Receive Date: 20090319
  Receipt Date: 20090309
  Transmission Date: 20090719
  Serious: Yes (Death)
  Sender: FDA-Public Use
  Company Number: PH-WYE-H08618509

PATIENT
  Age: 81 Year
  Sex: Male

DRUGS (26)
  1. AMIODARONE HCL [Suspect]
     Indication: ARRHYTHMIA
     Route: 048
     Dates: start: 20080820, end: 20080922
  2. TIMENTIN [Concomitant]
     Dosage: 1.6 G (FREQUENCY UNSPECIFIED)
     Dates: start: 20080828
  3. SODIUM CHLORIDE [Concomitant]
     Dosage: 1 UNIT EVERY 1 DAY
     Dates: start: 20080829
  4. MANNITOL [Concomitant]
     Dosage: 75 CC (FREQUENCY UNSPECIFIED)
     Dates: start: 20080829
  5. CITICOLINE [Concomitant]
     Dosage: 500 MG (FREQUENCY UNSPECIFIED)
     Dates: start: 20080829
  6. PIRACETAM [Concomitant]
     Dosage: 12 G (FREQUENCY UNSPECIFIED)
     Dates: start: 20080909
  7. PHENYLPROPANOLAMINE HYDROCHLORIDE [Concomitant]
     Dates: start: 20080911
  8. SULTAMICILLIN [Concomitant]
     Dates: start: 20080912
  9. LOSARTAN [Concomitant]
     Dates: start: 20080831
  10. RANITIDINE [Concomitant]
     Dosage: 150 MG (FREQUENCY UNSPECIFIED)
     Dates: start: 20080816, end: 20080101
  11. RANITIDINE [Concomitant]
     Dosage: 75 MG (FREQUENCY UNSPECIFIED)
     Dates: start: 20080101
  12. LACTULOSE [Concomitant]
     Dosage: 30 CC (FREQUENCY UNSPECIFIED)
     Dates: start: 20080816, end: 20080101
  13. LACTULOSE [Concomitant]
     Dosage: 25 CC (FREQUENCY UNSPECIFIED)
     Dates: start: 20080101
  14. PLETAL [Concomitant]
     Dates: start: 20080816
  15. OMEPRAZOLE [Concomitant]
     Dosage: 200 MG (FREQUENCY UNSPECIFIED)
     Dates: start: 20080817
  16. NORFLOXACIN [Concomitant]
     Dosage: 400 MG (FREQUENCY UNSPECIFIED)
     Dates: start: 20080815
  17. ALDAZIDE [Concomitant]
     Dosage: 1 UNIT (FREQUENCY UNSPECIFIED)
     Dates: start: 20080821
  18. NEURONTIN [Concomitant]
     Dosage: 100 MG (FREQUENCY UNSPECIFIED)
     Dates: start: 20080825
  19. FRAXIPARIN [Concomitant]
     Dosage: 0.4 CC (FREQUENCY UNSPECIFIED)
     Dates: start: 20080819
  20. ASPIRIN [Concomitant]
     Dosage: 80 MG (FREQUENCY UNSPECIFIED)
     Dates: start: 20080814
  21. UNASYN [Concomitant]
     Dosage: 750 MG (FREQUENCY UNSPECIFIED)
     Dates: start: 20080817
  22. LANOXIN [Concomitant]
     Dosage: 0.25 MG (FREQUENCY UNSPECIFIED)
     Dates: start: 20080818
  23. KALIUM [Concomitant]
     Dosage: 1 UNIT (FREQUENCY UNSPECIFIED)
     Dates: start: 20080818
  24. CEFIXIME CHEWABLE [Concomitant]
     Dosage: 200 MG (FREQUENCY UNSPECIFIED)
     Dates: start: 20080911
  25. DIFLUCAN [Concomitant]
     Dosage: 150 MG (FREQUENCY UNSPECIFIED)
     Dates: start: 20080831
  26. FLUIMUCIL [Concomitant]
     Dosage: 600 MG (FREQUENCY UNSPECIFIED)
     Dates: start: 20080817

REACTIONS (1)
  - DEATH [None]
